FAERS Safety Report 8846869 (Version 1)
Quarter: 2012Q4

REPORT INFORMATION
  Report Type: 
  Country: DK (occurrence: DK)
  Receive Date: 20121018
  Receipt Date: 20121018
  Transmission Date: 20130627
  Serious: Yes (Other)
  Sender: FDA-Public Use
  Company Number: DK-RANBAXY-2012R1-61012

PATIENT
  Sex: Female

DRUGS (3)
  1. TOPIRAMATE [Suspect]
     Indication: EPILEPSY
     Dosage: UNK
     Route: 065
  2. TRILEPTAL [Suspect]
     Indication: EPILEPSY
     Dosage: 1200 mg, daily
     Route: 065
  3. CLOBAZAM [Suspect]
     Indication: EPILEPSY
     Dosage: UNK
     Route: 065

REACTIONS (2)
  - Maternal exposure during pregnancy [Recovered/Resolved]
  - Abortion spontaneous [Unknown]
